FAERS Safety Report 7983340 (Version 3)
Quarter: 2012Q4

REPORT INFORMATION
  Report Type: Report from Study
  Country: CA (occurrence: CA)
  Receive Date: 20110609
  Receipt Date: 20121004
  Transmission Date: 20130627
  Serious: Yes (Other)
  Sender: FDA-Public Use
  Company Number: CA-AMGEN-CANCT2011014399

PATIENT
  Age: 80 Year

DRUGS (2)
  1. DENOSUMAB [Suspect]
     Indication: PROSTATE CANCER
     Dates: start: 20080205, end: 20101207
  2. ELIGARD [Concomitant]
     Dosage: 45 mg, q6mo
     Route: 058
     Dates: start: 20091008

REACTIONS (1)
  - Osteomyelitis [Recovered/Resolved]
